FAERS Safety Report 17434500 (Version 1)
Quarter: 2020Q1

REPORT INFORMATION
  Report Type: Spontaneous
  Country: US (occurrence: US)
  Receive Date: 20200219
  Receipt Date: 20200219
  Transmission Date: 20200409
  Serious: No
  Sender: FDA-Public Use
  Company Number: US-PFIZER INC-2020072525

PATIENT
  Age: 65 Year
  Sex: Male

DRUGS (1)
  1. INSPRA [Suspect]
     Active Substance: EPLERENONE
     Indication: CARDIAC FAILURE CONGESTIVE
     Dosage: 1 DF, 1X/DAY (PATIENT TAKES 1 TABLET AT NIGHT, BY MOUTH)
     Route: 048
     Dates: start: 2011

REACTIONS (3)
  - Malaise [Unknown]
  - Rhinorrhoea [Unknown]
  - Influenza [Unknown]
